FAERS Safety Report 5936764-5 (Version None)
Quarter: 2008Q4

REPORT INFORMATION
  Report Type: 
  Country: None (occurrence: None)
  Receive Date: 20081030
  Receipt Date: 20081022
  Transmission Date: 20090506
  Serious: Yes (Hospitalization)
  Sender: FDA-Public Use
  Company Number: BE-ABBOTT-08P-013-0476872-00

PATIENT
  Sex: Male

DRUGS (15)
  1. KALETRA [Suspect]
     Indication: HIV INFECTION
     Dates: start: 20080723, end: 20080908
  2. LAMIVUDINE + ZIDOVUDINE [Concomitant]
     Indication: DRUG USE FOR UNKNOWN INDICATION
     Dates: start: 20080723
  3. LAMIVUDINE + ZIDOVUDINE [Concomitant]
  4. NULYTELY [Concomitant]
     Indication: DRUG USE FOR UNKNOWN INDICATION
  5. XYLOCAINE GEL SOLIAN [Concomitant]
     Indication: DRUG USE FOR UNKNOWN INDICATION
  6. COLECALCIFEROL [Concomitant]
     Indication: DRUG USE FOR UNKNOWN INDICATION
     Dosage: 1X WEEK 3X, THEN 1X EOW
  7. COLECALCIFEROL [Concomitant]
  8. COLECALCIFEROL [Concomitant]
  9. CALCIUM CARBONATE [Concomitant]
     Indication: DRUG USE FOR UNKNOWN INDICATION
  10. DULOXETINE HYDROCHLORIDE [Concomitant]
     Indication: DRUG USE FOR UNKNOWN INDICATION
  11. ALPRAZOLAM [Concomitant]
     Indication: DRUG USE FOR UNKNOWN INDICATION
  12. LORMETAZEPAM [Concomitant]
     Indication: DRUG USE FOR UNKNOWN INDICATION
  13. ACETAMINOPHEN [Concomitant]
     Indication: DRUG USE FOR UNKNOWN INDICATION
     Dosage: IF NEEDED, 4 PER DAY
  14. CONTRAMAL RETARD [Concomitant]
     Indication: DRUG USE FOR UNKNOWN INDICATION
  15. PANTAZOL 40 [Concomitant]
     Indication: DRUG USE FOR UNKNOWN INDICATION

REACTIONS (4)
  - ABDOMINAL PAIN [None]
  - DRUG INTOLERANCE [None]
  - HEADACHE [None]
  - NAUSEA [None]
